FAERS Safety Report 4601176-3 (Version None)
Quarter: 2005Q1

REPORT INFORMATION
  Report Type: 
  Country: None (occurrence: None)
  Receive Date: 20050304
  Receipt Date: 20050222
  Transmission Date: 20050727
  Serious: Yes (Other)
  Sender: FDA-Public Use
  Company Number: 2005035836

PATIENT
  Age: 65 Year
  Sex: Female
  Weight: 65.7716 kg

DRUGS (13)
  1. CELEBREX [Suspect]
     Indication: FIBROMYALGIA
     Dosage: 100 MG (100 MG, 1 IN 1 D), ORAL
     Route: 048
     Dates: end: 20040101
  2. CELEBREX [Suspect]
     Indication: OSTEOARTHRITIS
     Dosage: 100 MG (100 MG, 1 IN 1 D), ORAL
     Route: 048
     Dates: end: 20040101
  3. BEXTRA [Suspect]
     Indication: FIBROMYALGIA
     Dosage: 20 MG (20 MG, 1 IN 1 D), ORAL
     Route: 048
     Dates: start: 20040101, end: 20050201
  4. PAROXETINE HCL [Concomitant]
  5. DILTIAZEM HYDROCHLORIDE [Concomitant]
  6. ATENOLOL [Concomitant]
  7. HYDROCHLOROTHIAZIDE [Concomitant]
  8. THYROID TAB [Concomitant]
  9. CYCLOBENZAPRINE HYDROCHLORIDE [Concomitant]
  10. ALPRAZOLAM [Concomitant]
  11. TOCOPHEROL (TOCOPHEROL) [Concomitant]
  12. VITAMIN B (VITAMIN B) [Concomitant]
  13. ASCORBIC ACID [Concomitant]

REACTIONS (4)
  - ABDOMINOPLASTY [None]
  - CORONARY ARTERY OCCLUSION [None]
  - DRUG INEFFECTIVE [None]
  - PAIN [None]
